FAERS Safety Report 5563006-5 (Version None)
Quarter: 2007Q4

REPORT INFORMATION
  Report Type: 
  Country: None (occurrence: None)
  Receive Date: 20071217
  Receipt Date: 20071212
  Transmission Date: 20080405
  Serious: Yes (Other)
  Sender: FDA-Public Use
  Company Number: AU-AVENTIS-200721386GDDC

PATIENT
  Age: 66 Year
  Sex: Female

DRUGS (2)
  1. ARAVA [Suspect]
     Indication: RHEUMATOID ARTHRITIS
     Route: 048
     Dates: start: 20051031
  2. METHOTREXATE [Concomitant]
     Dosage: DOSE: UNK

REACTIONS (2)
  - MALIGNANT MELANOMA [None]
  - METASTASES TO LYMPH NODES [None]
